FAERS Safety Report 26091548 (Version 1)
Quarter: 2025Q4

REPORT INFORMATION
  Report Type: Spontaneous
  Country: US (occurrence: None)
  Receive Date: 20251125
  Receipt Date: 20251125
  Transmission Date: 20260117
  Serious: Yes (Hospitalization)
  Sender: FDA-CTU
  Company Number: None

PATIENT
  Age: 53 Year
  Sex: Female

DRUGS (11)
  1. MYCOPHENOLIC ACID [Suspect]
     Active Substance: MYCOPHENOLIC ACID
     Indication: Renal transplant
     Dosage: FREQUENCY : TWICE A DAY;?
     Route: 048
     Dates: start: 20250812
  2. PANTOPRAZOLE [Concomitant]
     Active Substance: PANTOPRAZOLE
  3. LEVETIRACETAM [Concomitant]
     Active Substance: LEVETIRACETAM
  4. FUROSEMIDE [Concomitant]
     Active Substance: FUROSEMIDE
  5. DIVALPROEX SODIUM [Concomitant]
     Active Substance: DIVALPROEX SODIUM
  6. ONDANSETRON [Concomitant]
     Active Substance: ONDANSETRON
  7. ELIQUIS [Concomitant]
     Active Substance: APIXABAN
  8. ENVARSUS XR [Concomitant]
     Active Substance: TACROLIMUS
  9. CINACALCET [Concomitant]
     Active Substance: CINACALCET
  10. CARVEDILOL [Concomitant]
     Active Substance: CARVEDILOL
  11. K PHOS NEUTRAL [Concomitant]
     Active Substance: POTASSIUM PHOSPHATE, MONOBASIC\SODIUM PHOSPHATE, DIBASIC, ANHYDROUS\SODIUM PHOSPHATE, MONOBASIC, MON

REACTIONS (3)
  - Decreased appetite [None]
  - Blood pressure decreased [None]
  - Urinary tract infection [None]

NARRATIVE: CASE EVENT DATE: 20251114
